FAERS Safety Report 24277752 (Version 3)
Quarter: 2024Q3

REPORT INFORMATION
  Report Type: Report from Study
  Country: US (occurrence: US)
  Receive Date: 20240903
  Receipt Date: 20240913
  Transmission Date: 20241016
  Serious: Yes (Other)
  Sender: OTSUKA
  Company Number: US-OTSUKA-2024_010263

PATIENT
  Age: 48 Year
  Sex: Female
  Weight: 51.71 kg

DRUGS (2)
  1. TOLVAPTAN [Suspect]
     Active Substance: TOLVAPTAN
     Indication: Congenital cystic kidney disease
     Dosage: 45 MG
     Route: 065
     Dates: start: 20240322, end: 20240828
  2. TOLVAPTAN [Suspect]
     Active Substance: TOLVAPTAN
     Dosage: 15 MG
     Route: 065
     Dates: start: 20240322, end: 20240828

REACTIONS (8)
  - Renal impairment [Not Recovered/Not Resolved]
  - Blood sodium abnormal [Unknown]
  - Haemodynamic instability [Unknown]
  - Amylase increased [Unknown]
  - Nocturia [Unknown]
  - Transaminases increased [Unknown]
  - Thirst [Unknown]
  - Intentional dose omission [Recovered/Resolved]

NARRATIVE: CASE EVENT DATE: 20240408
